FAERS Safety Report 24665049 (Version 7)
Quarter: 2025Q1

REPORT INFORMATION
  Report Type: Spontaneous
  Country: CA (occurrence: CA)
  Receive Date: 20241126
  Receipt Date: 20250327
  Transmission Date: 20250408
  Serious: Yes (Hospitalization, Other)
  Sender: PFIZER
  Company Number: CA-PFIZER INC-202400307866

PATIENT
  Age: 63 Year
  Sex: Female

DRUGS (29)
  1. ABRILADA [Suspect]
     Active Substance: ADALIMUMAB-AFZB
     Indication: Crohn^s disease
     Dosage: 40 MG, WEEKLY (EVERY 7 DAY)
     Route: 058
     Dates: start: 20241114
  2. ABRILADA [Suspect]
     Active Substance: ADALIMUMAB-AFZB
     Dosage: 40 MG, WEEKLY (EVERY 7 DAY)
     Route: 058
     Dates: start: 20241121
  3. ABRILADA [Suspect]
     Active Substance: ADALIMUMAB-AFZB
     Dosage: 40 MG, WEEKLY (EVERY 7 DAY)
     Route: 058
     Dates: start: 20241227
  4. ABRILADA [Suspect]
     Active Substance: ADALIMUMAB-AFZB
     Dosage: 40 MG, WEEKLY (EVERY 7 DAY)
     Route: 058
     Dates: start: 20250102
  5. ABRILADA [Suspect]
     Active Substance: ADALIMUMAB-AFZB
     Dosage: 40 MG, WEEKLY (EVERY 7 DAY)
     Route: 058
     Dates: start: 20250116
  6. ABRILADA [Suspect]
     Active Substance: ADALIMUMAB-AFZB
     Dosage: 40 MG, WEEKLY (EVERY 7 DAY)
     Route: 058
     Dates: start: 20250122
  7. ABRILADA [Suspect]
     Active Substance: ADALIMUMAB-AFZB
     Dosage: 40 MG, WEEKLY (EVERY 7 DAY)
     Route: 058
     Dates: start: 20250212
  8. ABRILADA [Suspect]
     Active Substance: ADALIMUMAB-AFZB
     Dosage: 40 MG, WEEKLY (EVERY 7 DAY)
     Route: 058
     Dates: start: 20250219
  9. ABRILADA [Suspect]
     Active Substance: ADALIMUMAB-AFZB
     Dosage: 40 MG, WEEKLY (EVERY 7 DAY)
     Route: 058
     Dates: start: 20250312
  10. ABRILADA [Suspect]
     Active Substance: ADALIMUMAB-AFZB
     Dosage: 40 MG, WEEKLY
     Route: 058
     Dates: start: 20250319
  11. CALCIUM [Concomitant]
     Active Substance: CALCIUM
  12. COUMADIN [Concomitant]
     Active Substance: WARFARIN SODIUM
  13. DILANTIN [Concomitant]
     Active Substance: PHENYTOIN
  14. EFFEXOR [Concomitant]
     Active Substance: VENLAFAXINE HYDROCHLORIDE
  15. GLICLAZIDE [Concomitant]
     Active Substance: GLICLAZIDE
  16. INVOKANA [Concomitant]
     Active Substance: CANAGLIFLOZIN
  17. LACOSAMIDE [Concomitant]
     Active Substance: LACOSAMIDE
  18. LEVETIRACETAM [Concomitant]
     Active Substance: LEVETIRACETAM
  19. M EZETIMIBE [Concomitant]
  20. MIDODRINE [Concomitant]
     Active Substance: MIDODRINE
  21. NORVASC [Concomitant]
     Active Substance: AMLODIPINE BESYLATE
  22. CHOLESTYRAMINE [Concomitant]
     Active Substance: CHOLESTYRAMINE
  23. PANTOPRAZOLE SODIUM [Concomitant]
     Active Substance: PANTOPRAZOLE SODIUM
  24. PERINDOPRIL [Concomitant]
     Active Substance: PERINDOPRIL
  25. PHENOBARBITAL [Concomitant]
     Active Substance: PHENOBARBITAL
  26. SEROQUEL [Concomitant]
     Active Substance: QUETIAPINE FUMARATE
  27. VITAMIN B12 [Concomitant]
     Active Substance: CYANOCOBALAMIN
  28. CHOLECALCIFEROL [Concomitant]
     Active Substance: CHOLECALCIFEROL
  29. ZOCOR [Concomitant]
     Active Substance: SIMVASTATIN

REACTIONS (7)
  - Head injury [Unknown]
  - Fall [Unknown]
  - Cerebral haemorrhage [Recovered/Resolved]
  - Dizziness [Recovered/Resolved]
  - Pain in extremity [Unknown]
  - Arthralgia [Unknown]
  - Contusion [Unknown]

NARRATIVE: CASE EVENT DATE: 20241120
